FAERS Safety Report 13499661 (Version 3)
Quarter: 2017Q2

REPORT INFORMATION
  Report Type: Report from Study
  Country: PL (occurrence: PL)
  Receive Date: 20170501
  Receipt Date: 20170613
  Transmission Date: 20170830
  Serious: Yes (Hospitalization)
  Sender: FDA-Public Use
  Company Number: PL-PFIZER INC-2017175687

PATIENT
  Age: 69 Year
  Sex: Female
  Weight: 60 kg

DRUGS (5)
  1. METEX /00113802/ [Concomitant]
     Active Substance: METHOTREXATE SODIUM
     Indication: PSORIATIC ARTHROPATHY
     Dosage: 1 AMP 15 MG, WEEKLY
     Route: 058
     Dates: start: 20140425
  2. ZOMIREN SR(ALPRAZOLAMUM) [Concomitant]
     Indication: DEPRESSION
     Dosage: 1 TBL 0.5 MG, 1X/DAY
     Route: 048
     Dates: start: 2002
  3. ROSWERA [Concomitant]
     Active Substance: ROSUVASTATIN
     Indication: HYPERLIPIDAEMIA
     Dosage: 1 TBL 10 MG, 1X/DAY
     Route: 048
     Dates: start: 20131123
  4. TOFACITINIB CITRATE [Suspect]
     Active Substance: TOFACITINIB CITRATE
     Indication: PSORIATIC ARTHROPATHY
     Dosage: 10 MG, 2X/DAY
     Route: 048
     Dates: start: 20150930, end: 201704
  5. APO-ZOLPIN [Concomitant]
     Indication: INSOMNIA
     Dosage: 10 MG, 1X/DAY
     Route: 048
     Dates: start: 20131001, end: 20170404

REACTIONS (1)
  - Angina unstable [Recovered/Resolved]

NARRATIVE: CASE EVENT DATE: 20170405
